FAERS Safety Report 21293584 (Version 1)
Quarter: 2022Q3

REPORT INFORMATION
  Report Type: Spontaneous
  Country: SE (occurrence: None)
  Receive Date: 20220905
  Receipt Date: 20220905
  Transmission Date: 20221027
  Serious: Yes (Death)
  Sender: FDA-Public Use
  Company Number: SE-ROCHE-3172554

PATIENT
  Age: 68 Year
  Sex: Female

DRUGS (1)
  1. CAPECITABINE [Suspect]
     Active Substance: CAPECITABINE
     Indication: Gastrointestinal carcinoma
     Route: 048
     Dates: start: 202110

REACTIONS (6)
  - Fatigue [Fatal]
  - Mouth ulceration [Fatal]
  - Organ failure [Fatal]
  - Diarrhoea [Fatal]
  - Dysphagia [Fatal]
  - Dizziness [Fatal]

NARRATIVE: CASE EVENT DATE: 20211001
